FAERS Safety Report 16888833 (Version 1)
Quarter: 2019Q4

REPORT INFORMATION
  Report Type: Spontaneous
  Country: GB (occurrence: GB)
  Receive Date: 20191007
  Receipt Date: 20191007
  Transmission Date: 20200122
  Serious: Yes (Other)
  Sender: FDA-Public Use
  Company Number: GB-B.I. PHARMACEUTICALS,INC./RIDGEFIELD-2019-12-105985

PATIENT
  Age: 36 Year
  Sex: Male
  Weight: 97 kg

DRUGS (2)
  1. JARDIANCE [Suspect]
     Active Substance: EMPAGLIFLOZIN
     Indication: PRODUCT USED FOR UNKNOWN INDICATION
     Dosage: WITH MAIN MEAL
     Route: 065
     Dates: start: 20190425, end: 20190905
  2. METFORMIN [Concomitant]
     Active Substance: METFORMIN HYDROCHLORIDE
     Indication: PRODUCT USED FOR UNKNOWN INDICATION
     Route: 065
     Dates: start: 20170802

REACTIONS (1)
  - Diabetic ketoacidosis [Recovered/Resolved]

NARRATIVE: CASE EVENT DATE: 20190909
